FAERS Safety Report 9761006 (Version 1)
Quarter: 2013Q4

REPORT INFORMATION
  Report Type: Spontaneous
  Country: GB (occurrence: GB)
  Receive Date: 20131216
  Receipt Date: 20131216
  Transmission Date: 20140711
  Serious: Yes (Other)
  Sender: FDA-Public Use
  Company Number: GB-WATSON-2013-22534

PATIENT
  Sex: 0

DRUGS (1)
  1. CITALOPRAM [Suspect]
     Indication: PRODUCT USED FOR UNKNOWN INDICATION
     Dosage: 20 MG,  UNK
     Route: 048

REACTIONS (6)
  - Depression [Unknown]
  - Nightmare [Unknown]
  - Paranoia [Unknown]
  - Migraine [Unknown]
  - Anxiety [Unknown]
  - Drug ineffective [Unknown]
